FAERS Safety Report 14372079 (Version 1)
Quarter: 2018Q1

REPORT INFORMATION
  Report Type: Report from Study
  Country: CA (occurrence: CA)
  Receive Date: 20180110
  Receipt Date: 20180110
  Transmission Date: 20180509
  Serious: Yes (Other)
  Sender: FDA-Public Use
  Company Number: CA-JNJFOC-20180104180

PATIENT
  Age: 15 Year
  Sex: Female
  Weight: 56.6 kg

DRUGS (1)
  1. REMICADE [Suspect]
     Active Substance: INFLIXIMAB
     Indication: CROHN^S DISEASE
     Dosage: STRENGTH = 100 MG
     Route: 042

REACTIONS (4)
  - Post procedural infection [Recovered/Resolved]
  - Hypotension [Recovered/Resolved]
  - Nasopharyngitis [Recovered/Resolved]
  - Tonsillectomy [Recovered/Resolved]

NARRATIVE: CASE EVENT DATE: 2017
